FAERS Safety Report 24197841 (Version 1)
Quarter: 2024Q3

REPORT INFORMATION
  Report Type: Spontaneous
  Country: SE (occurrence: SE)
  Receive Date: 20240811
  Receipt Date: 20240811
  Transmission Date: 20241016
  Serious: Yes (Other)
  Sender: JOHNSON AND JOHNSON
  Company Number: None

PATIENT
  Age: 21 Year
  Sex: Female

DRUGS (7)
  1. CONCERTA [Suspect]
     Active Substance: METHYLPHENIDATE HYDROCHLORIDE
     Indication: Attention deficit hyperactivity disorder
     Route: 048
  2. FOLSYRA VITABALANS [Concomitant]
  3. DESOGESTREL [Concomitant]
     Active Substance: DESOGESTREL
     Dates: start: 20211019
  4. ATARAX [Concomitant]
     Active Substance: HYDROXYZINE HYDROCHLORIDE
  5. BRICANYL [Concomitant]
     Active Substance: TERBUTALINE SULFATE
  6. BUDESONIDE [Concomitant]
     Active Substance: BUDESONIDE
  7. ACETAMINOPHEN [Concomitant]
     Active Substance: ACETAMINOPHEN

REACTIONS (1)
  - Suicidal ideation [Recovered/Resolved]

NARRATIVE: CASE EVENT DATE: 20240601
